FAERS Safety Report 4307115-7 (Version None)
Quarter: 2004Q1

REPORT INFORMATION
  Report Type: 
  Country: None (occurrence: None)
  Receive Date: 20040225
  Receipt Date: 20040209
  Transmission Date: 20041129
  Serious: Yes (Hospitalization)
  Sender: FDA-Public Use
  Company Number: USA040258922

PATIENT
  Sex: Female

DRUGS (2)
  1. ZYPREXA [Suspect]
  2. DEPAKOTE [Concomitant]

REACTIONS (2)
  - COMPLICATIONS OF MATERNAL EXPOSURE TO THERAPEUTIC DRUGS [None]
  - HOSPITALISATION [None]
